FAERS Safety Report 7465918-4 (Version None)
Quarter: 2011Q2

REPORT INFORMATION
  Report Type: 
  Country: None (occurrence: None)
  Receive Date: 20110509
  Receipt Date: 20100506
  Transmission Date: 20111010
  Serious: No
  Sender: FDA-Public Use
  Company Number: US-ALEXION-A201000521

PATIENT

DRUGS (20)
  1. CELEXA [Concomitant]
     Dosage: 10 MG, QD
     Route: 048
     Dates: start: 20100204
  2. TARCEVA [Concomitant]
     Dosage: 150 MG, QD
     Route: 048
     Dates: start: 20090713
  3. DEXAMETHASONE [Concomitant]
     Dosage: 2 MG, QOD
     Dates: start: 20091226
  4. SOLIRIS [Suspect]
     Indication: PAROXYSMAL NOCTURNAL HAEMOGLOBINURIA
     Dosage: 600 MG, Q 4 WEEKS
     Route: 042
     Dates: start: 20091228
  5. ASPIRIN [Concomitant]
     Dosage: 81 MG, QD
     Route: 048
     Dates: start: 20100517
  6. TYLENOL EXTRA STRENGTH [Concomitant]
     Dosage: 500 MG, Q4-6H PRN
     Route: 048
     Dates: start: 20091223
  7. DEFEROXAMINE MESYLATE [Concomitant]
     Dosage: 1 G, WHEN PATIENT HERE FOR IV'S, LABS
     Dates: start: 20100323
  8. INDOMETHACIN [Concomitant]
     Indication: GOUT
     Dosage: 25 MG, TID
     Route: 048
     Dates: start: 20091116
  9. ZANTAC                             /00550802/ [Concomitant]
     Dosage: 75 MG, BID PRN
     Route: 048
     Dates: start: 20090919
  10. SOLIRIS [Suspect]
     Dosage: 900 MG, EVERY OTHER WEEK
     Route: 042
  11. ACYCLOVIR [Concomitant]
     Dosage: 400 MG, TID
     Route: 048
     Dates: start: 20090924
  12. DEFEROXAMINE MESYLATE [Concomitant]
     Dosage: 500 MG, UNK
     Dates: start: 20100323
  13. SULFASALAZINE [Concomitant]
     Dosage: 500 MG, BID
     Route: 048
     Dates: start: 20100112
  14. TOPROL-XL [Concomitant]
     Dosage: 25 MG, QD
     Route: 048
     Dates: start: 20100223
  15. LORAZEPAM [Concomitant]
     Dosage: 1/2 TO 1 TABLET Q6-8H PRN
     Route: 048
     Dates: start: 20091207
  16. LEVAQUIN [Concomitant]
     Dosage: 1 TABLET QD AS NEEDED
     Route: 048
     Dates: start: 20090521
  17. FOLIC ACID [Concomitant]
     Dosage: 1 MG, QD
     Route: 048
     Dates: start: 20060203
  18. CHLORHEXIDINE GLUCONATE [Concomitant]
     Dosage: 5 ML, BID
     Route: 048
     Dates: start: 20091030
  19. HYDRALAZINE HCL [Concomitant]
     Dosage: 25 MG, QAM
     Route: 048
     Dates: start: 20091116
  20. PROCRIT                            /00909301/ [Concomitant]
     Dosage: QWK
     Route: 058

REACTIONS (3)
  - DIARRHOEA [None]
  - ABDOMINAL PAIN [None]
  - BLOOD IRON INCREASED [None]
